FAERS Safety Report 11744813 (Version 3)
Quarter: 2015Q4

REPORT INFORMATION
  Report Type: Report from Study
  Country: AU (occurrence: AU)
  Receive Date: 20151116
  Receipt Date: 20151223
  Transmission Date: 20160304
  Serious: Yes (Death, Hospitalization)
  Sender: FDA-Public Use
  Company Number: AU-ROCHE-1661151

PATIENT
  Age: 78 Year
  Sex: Female
  Weight: 64 kg

DRUGS (7)
  1. PERINDOPRIL [Concomitant]
     Active Substance: PERINDOPRIL
     Indication: HYPERTENSION
     Route: 048
     Dates: start: 2011
  2. CARBOPLATIN. [Suspect]
     Active Substance: CARBOPLATIN
     Indication: OVARIAN CANCER
     Dosage: 3 WEEKLY, DATE OF LAST DOSE PRIOR TO SAE:17/JUL/2015
     Route: 042
     Dates: start: 20150320
  3. GEMCITABINE [Suspect]
     Active Substance: GEMCITABINE\GEMCITABINE HYDROCHLORIDE
     Indication: OVARIAN CANCER
     Dosage: DAY 1 AND 8 OF 3 WEEKS CYCLE, LAST DOSE PRIOR TO SAE: 17/JUL/2015
     Route: 065
     Dates: start: 20150320
  4. ATORVASTATIN [Concomitant]
     Active Substance: ATORVASTATIN
     Indication: HYPERCHOLESTEROLAEMIA
     Route: 048
     Dates: start: 2010
  5. SALBUTAMOL [Concomitant]
     Active Substance: ALBUTEROL
     Indication: ASTHMA
     Dosage: INHALATIONAL, 1-2 PUFFS
     Route: 065
     Dates: start: 2010
  6. SERETIDE [Concomitant]
     Active Substance: FLUTICASONE FUROATE\SALMETEROL XINAFOATE
     Indication: ASTHMA
     Dosage: INHALATIONAL, 1-2 PUFFS
     Route: 065
     Dates: start: 2014
  7. BEVACIZUMAB [Suspect]
     Active Substance: BEVACIZUMAB
     Indication: OVARIAN CANCER
     Dosage: 3 WEEKLY, DATE OF LAST DOSE PRIOR TO SAE:16/OCT/2015
     Route: 042
     Dates: start: 20150417

REACTIONS (2)
  - Hyponatraemia [Fatal]
  - Osmotic demyelination syndrome [Fatal]

NARRATIVE: CASE EVENT DATE: 20151104
